FAERS Safety Report 6631420-2 (Version None)
Quarter: 2010Q1

REPORT INFORMATION
  Report Type: 
  Country: None (occurrence: None)
  Receive Date: 20100311
  Receipt Date: 20100311
  Transmission Date: 20100710
  Serious: No
  Sender: FDA-Public Use
  Company Number: None

PATIENT
  Age: 68 Year
  Sex: Male

DRUGS (1)
  1. ISOVUE-128 [Suspect]
     Indication: COMPUTERISED TOMOGRAM ABDOMEN
     Dosage: ONCE IV
     Route: 042
     Dates: start: 20100225, end: 20100225

REACTIONS (1)
  - URTICARIA [None]
